FAERS Safety Report 9025891 (Version 1)
Quarter: 2012Q4

REPORT INFORMATION
  Report Type: 
  Country: US (occurrence: None)
  Receive Date: 20121214
  Receipt Date: 20121214
  Transmission Date: 20130627
  Serious: Yes (Hospitalization)
  Sender: FDA-Public Use
  Company Number: None

PATIENT
  Sex: Male
  Weight: 65.1 kg

DRUGS (3)
  1. 5-FLUOROURACIL [Suspect]
     Dates: end: 20121019
  2. LEUCOVORIN CALCIUM [Suspect]
     Dates: end: 20121019
  3. OXALIPLATIN [Suspect]
     Dates: end: 20121019

REACTIONS (10)
  - Sinus bradycardia [None]
  - Atrioventricular block first degree [None]
  - Ileus [None]
  - Small intestinal obstruction [None]
  - Cerebral infarction [None]
  - Hemiparesis [None]
  - Abasia [None]
  - Paraesthesia [None]
  - Balance disorder [None]
  - Vomiting [None]
